FAERS Safety Report 18658364 (Version 1)
Quarter: 2020Q4

REPORT INFORMATION
  Report Type: Other
  Country: US (occurrence: US)
  Receive Date: 20201224
  Receipt Date: 20201224
  Transmission Date: 20210114
  Serious: Yes (Hospitalization, Other)
  Sender: FDA-Public Use
  Company Number: US-ROCHE-2677986

PATIENT
  Age: 48 Year
  Sex: Male
  Weight: 90.8 kg

DRUGS (10)
  1. OCREVUS [Suspect]
     Active Substance: OCRELIZUMAB
     Dosage: ONGOING:NO
     Route: 042
     Dates: start: 2017
  2. OCREVUS [Suspect]
     Active Substance: OCRELIZUMAB
     Indication: RELAPSING MULTIPLE SCLEROSIS
     Route: 042
  3. OCREVUS [Suspect]
     Active Substance: OCRELIZUMAB
     Route: 042
  4. BACLOFEN. [Concomitant]
     Active Substance: BACLOFEN
     Indication: MUSCLE SPASMS
     Route: 048
     Dates: start: 2016
  5. GABAPENTIN. [Concomitant]
     Active Substance: GABAPENTIN
     Indication: HYPOAESTHESIA
     Dosage: ONGOING:YES
     Route: 048
     Dates: start: 2010
  6. THC [Concomitant]
     Active Substance: DRONABINOL
     Indication: MUSCLE SPASMS
     Dosage: ONGOING:YES
     Route: 048
  7. OCREVUS [Suspect]
     Active Substance: OCRELIZUMAB
     Indication: PROGRESSIVE MULTIPLE SCLEROSIS
     Dosage: ONGOING : NO
     Route: 065
     Dates: start: 2017
  8. TIZANIDINE. [Concomitant]
     Active Substance: TIZANIDINE
     Indication: MUSCLE SPASMS
     Dosage: ONGOING:YES
     Route: 048
     Dates: start: 2018
  9. CBD [Concomitant]
     Active Substance: CANNABIDIOL
     Indication: MUSCLE SPASMS
     Dosage: ONGOING:YES
     Route: 048
  10. RITUXAN [Suspect]
     Active Substance: RITUXIMAB
     Indication: PRODUCT USED FOR UNKNOWN INDICATION
     Dosage: ONGOING:NO
     Route: 065

REACTIONS (7)
  - Urinary tract infection [Recovered/Resolved]
  - Multiple sclerosis relapse [Unknown]
  - Muscular weakness [Unknown]
  - Balance disorder [Unknown]
  - Intentional product use issue [Unknown]
  - Off label use [Unknown]
  - Investigation abnormal [Unknown]

NARRATIVE: CASE EVENT DATE: 201904
